FAERS Safety Report 5023806-7 (Version None)
Quarter: 2006Q2

REPORT INFORMATION
  Report Type: 
  Country: None (occurrence: None)
  Receive Date: 20060606
  Receipt Date: 20060526
  Transmission Date: 20061013
  Serious: Yes (Other)
  Sender: FDA-Public Use
  Company Number: 2006069426

PATIENT
  Age: 17 Year
  Sex: Male
  Weight: 58.9676 kg

DRUGS (1)
  1. DRAMAMINE [Suspect]
     Dosage: 36 TABLETS ONCE, ORAL
     Route: 048
     Dates: start: 20060526, end: 20060526

REACTIONS (2)
  - ILL-DEFINED DISORDER [None]
  - INCORRECT DOSE ADMINISTERED [None]
